FAERS Safety Report 7423179-6 (Version None)
Quarter: 2011Q2

REPORT INFORMATION
  Report Type: 
  Country: None (occurrence: None)
  Receive Date: 20110411
  Receipt Date: 20110328
  Transmission Date: 20111010
  Serious: Yes (Life-Threatening)
  Sender: FDA-Public Use
  Company Number: 2011CP000043

PATIENT
  Age: 59 Year
  Sex: Male

DRUGS (6)
  1. SUFENTANIL CITRATE [Concomitant]
  2. KETOPROFEN [Suspect]
     Indication: SKIN DISORDER
     Dosage: 100 MG;X1; IV
     Route: 042
     Dates: start: 20040504, end: 20040504
  3. PROPOFOL [Suspect]
     Dosage: 200 MG;1X;IV
     Route: 042
     Dates: start: 20040504, end: 20040504
  4. PERFALGAN (PARACETAMOL) [Suspect]
     Indication: SKIN DISORDER
     Dosage: 1 GM;1X;IV
     Route: 042
     Dates: start: 20040504, end: 20040504
  5. MIDAZOLAM (MIDAZOLAM) [Suspect]
     Indication: TOXICITY TO VARIOUS AGENTS
     Dosage: 5 MG; IV
     Route: 042
     Dates: start: 20040504
  6. ATRACURIUM BESYLATE [Concomitant]

REACTIONS (3)
  - ANAPHYLACTIC REACTION [None]
  - OXYGEN SATURATION DECREASED [None]
  - HYPOTENSION [None]
